FAERS Safety Report 20906616 (Version 1)
Quarter: 2022Q2

REPORT INFORMATION
  Report Type: Spontaneous
  Country: US (occurrence: None)
  Receive Date: 20220602
  Receipt Date: 20220602
  Transmission Date: 20220720
  Serious: No
  Sender: FDA-Public Use
  Company Number: None

PATIENT
  Sex: Female

DRUGS (1)
  1. HUMIRA [Suspect]
     Active Substance: ADALIMUMAB
     Indication: Crohn^s disease
     Dosage: DOSE/FREQUENCY: INJECT 2 PENS UNDER THE SKIN ON DAY 1, THEN 1 PEN ON DAY 15, THEN START MAINTENANCE
     Route: 058
     Dates: start: 202203

REACTIONS (1)
  - Intestinal obstruction [None]
